FAERS Safety Report 25838169 (Version 2)
Quarter: 2025Q4

REPORT INFORMATION
  Report Type: Report from Study
  Country: GB (occurrence: GB)
  Receive Date: 20250923
  Receipt Date: 20251001
  Transmission Date: 20260117
  Serious: No
  Sender: ABBVIE
  Company Number: GB-ABBVIE-6466404

PATIENT
  Age: 75 Year
  Sex: Female

DRUGS (1)
  1. FOSCARBIDOPA\FOSLEVODOPA [Suspect]
     Active Substance: FOSCARBIDOPA\FOSLEVODOPA
     Indication: Parkinson^s disease
     Dosage: PRODUODOPA ABBV 951 PUMP KIT ENGLISH G
     Route: 058
     Dates: start: 202508

REACTIONS (2)
  - Wound [Unknown]
  - Limb injury [Unknown]

NARRATIVE: CASE EVENT DATE: 20250101
